FAERS Safety Report 6395656-0 (Version None)
Quarter: 2009Q4

REPORT INFORMATION
  Report Type: 
  Country: None (occurrence: None)
  Receive Date: 20091009
  Receipt Date: 20091002
  Transmission Date: 20100525
  Serious: Yes (Death)
  Sender: FDA-Public Use
  Company Number: JP-AVENTIS-200912719JP

PATIENT
  Age: 69 Year
  Sex: Male
  Weight: 51.5 kg

DRUGS (15)
  1. LASIX [Suspect]
     Route: 048
     Dates: start: 20080302, end: 20080403
  2. PANALDINE [Suspect]
     Indication: AORTIC VALVE INCOMPETENCE
     Route: 048
     Dates: start: 20080229, end: 20080307
  3. LASIX [Concomitant]
     Route: 042
     Dates: start: 20080229, end: 20080229
  4. ASPIRIN [Concomitant]
     Indication: AORTIC VALVE INCOMPETENCE
     Route: 048
     Dates: start: 20080229, end: 20080401
  5. OMEPRA [Concomitant]
     Indication: GASTRIC ULCER
     Route: 048
     Dates: start: 20080229, end: 20080401
  6. OMEPRA [Concomitant]
     Route: 048
     Dates: start: 20080229, end: 20080401
  7. ALDACTONE [Concomitant]
     Route: 048
     Dates: start: 20080229, end: 20080401
  8. OLMETEC [Concomitant]
     Indication: HYPERTENSION
     Route: 048
     Dates: start: 20080229, end: 20080401
  9. FERRUM [Concomitant]
     Route: 048
     Dates: start: 20080229, end: 20080401
  10. ZYLORIC [Concomitant]
     Route: 048
     Dates: start: 20080304, end: 20080401
  11. CALBLOCK [Concomitant]
     Indication: HYPERTENSION
     Route: 048
     Dates: start: 20080229, end: 20080229
  12. THYRADIN S [Concomitant]
     Route: 048
     Dates: start: 20080317, end: 20080403
  13. HANP [Concomitant]
     Route: 048
     Dates: start: 20080329, end: 20080303
  14. CEFAMEZIN                          /00288502/ [Concomitant]
     Route: 042
     Dates: start: 20080307, end: 20080308
  15. CEFAMEZIN                          /00288502/ [Concomitant]
     Indication: INFECTION PROPHYLAXIS
     Route: 042
     Dates: start: 20080307, end: 20080308

REACTIONS (3)
  - AGRANULOCYTOSIS [None]
  - PNEUMONIA [None]
  - SEPTIC SHOCK [None]
